FAERS Safety Report 5142891-5 (Version None)
Quarter: 2006Q4

REPORT INFORMATION
  Report Type: 
  Country: None (occurrence: None)
  Receive Date: 20061030
  Receipt Date: 20061018
  Transmission Date: 20070319
  Serious: Yes (Death, Other)
  Sender: FDA-Public Use
  Company Number: 430002L06FRA

PATIENT
  Age: 24 Year
  Sex: Female

DRUGS (1)
  1. NOVANTRONE [Suspect]
     Indication: NEUROMYELITIS OPTICA
     Dates: start: 20030622, end: 20031122

REACTIONS (3)
  - ACUTE MYELOID LEUKAEMIA [None]
  - BONE MARROW TRANSPLANT [None]
  - SEPTIC SHOCK [None]
